FAERS Safety Report 8170557-6 (Version None)
Quarter: 2012Q1

REPORT INFORMATION
  Report Type: 
  Country: None (occurrence: None)
  Receive Date: 20120228
  Receipt Date: 20120222
  Transmission Date: 20120608
  Serious: Yes (Other)
  Sender: FDA-Public Use
  Company Number: JP-PFIZER INC-2012046125

PATIENT

DRUGS (1)
  1. AZULFIDINE [Suspect]

REACTIONS (1)
  - LIVER DISORDER [None]
